FAERS Safety Report 9214273 (Version 2)
Quarter: 2013Q2

REPORT INFORMATION
  Report Type: Report from Study
  Country: ES (occurrence: ES)
  Receive Date: 20130405
  Receipt Date: 20130423
  Transmission Date: 20140414
  Serious: Yes (Hospitalization)
  Sender: FDA-Public Use
  Company Number: ES-BAXTER-2013BAX012241

PATIENT
  Age: 64 Year
  Sex: Female

DRUGS (18)
  1. GENOXAL 1 G INYECTABLE [Suspect]
     Indication: B-CELL LYMPHOMA
     Route: 065
  2. RITUXIMAB [Suspect]
     Indication: B-CELL LYMPHOMA
     Route: 042
     Dates: start: 20130312
  3. DOXORUBICIN [Suspect]
     Indication: B-CELL LYMPHOMA
     Route: 065
  4. VINCRISTINE [Suspect]
     Indication: B-CELL LYMPHOMA
     Route: 065
  5. PREDNISONE [Suspect]
     Indication: B-CELL LYMPHOMA
     Route: 065
  6. MORPHINE [Concomitant]
     Indication: PRODUCT USED FOR UNKNOWN INDICATION
     Route: 065
     Dates: start: 201302
  7. METOCLOPRAMIDE [Concomitant]
     Indication: PROPHYLAXIS
     Route: 065
     Dates: start: 201302
  8. LACTITOL [Concomitant]
     Indication: PROPHYLAXIS
     Route: 065
     Dates: start: 201302
  9. PARACETAMOL [Concomitant]
     Indication: PRODUCT USED FOR UNKNOWN INDICATION
     Route: 065
     Dates: start: 201302
  10. PARACETAMOL [Concomitant]
     Route: 065
     Dates: start: 20120312
  11. IBUPROFEN [Concomitant]
     Indication: PRODUCT USED FOR UNKNOWN INDICATION
     Route: 065
     Dates: start: 201302
  12. PREGABALIN [Concomitant]
     Indication: PRODUCT USED FOR UNKNOWN INDICATION
     Route: 065
     Dates: start: 201302
  13. LORAZEPAM [Concomitant]
     Indication: PROPHYLAXIS
     Route: 065
  14. PANTOPRAZOL [Concomitant]
     Indication: PROPHYLAXIS
     Route: 065
     Dates: start: 201302
  15. POLARAMINE [Concomitant]
     Indication: PROPHYLAXIS
     Route: 065
     Dates: start: 20130312, end: 20130312
  16. GRANISETRON [Concomitant]
     Indication: PROPHYLAXIS
     Route: 065
     Dates: start: 20130312
  17. AMOXICILLIN/CLAVULANATE POTASSIUM [Concomitant]
     Indication: RESPIRATORY TRACT INFECTION
     Route: 065
     Dates: start: 20130402, end: 20130407
  18. AMOXICILLIN/CLAVULANATE POTASSIUM [Concomitant]
     Indication: PROPHYLAXIS

REACTIONS (3)
  - Respiratory tract infection [Recovered/Resolved]
  - Sputum culture positive [None]
  - Staphylococcal infection [None]
